FAERS Safety Report 24311697 (Version 2)
Quarter: 2024Q4

REPORT INFORMATION
  Report Type: Spontaneous
  Country: US (occurrence: US)
  Receive Date: 20240912
  Receipt Date: 20241001
  Transmission Date: 20250114
  Serious: Yes (Hospitalization, Other)
  Sender: PFIZER
  Company Number: US-PFIZER INC-202400254189

PATIENT
  Age: 84 Year
  Sex: Male
  Weight: 74.39 kg

DRUGS (1)
  1. VYNDAMAX [Suspect]
     Active Substance: TAFAMIDIS
     Indication: Amyloidosis
     Dosage: 61 MG, ONE
     Dates: start: 2023

REACTIONS (3)
  - Bile duct stone [Unknown]
  - Cholecystitis infective [Unknown]
  - Tremor [Unknown]
